FAERS Safety Report 14378233 (Version 10)
Quarter: 2020Q2

REPORT INFORMATION
  Report Type: Spontaneous
  Country: US (occurrence: US)
  Receive Date: 20180111
  Receipt Date: 20200429
  Transmission Date: 20200713
  Serious: Yes (Hospitalization)
  Sender: FDA-Public Use
  Company Number: US-ACTELION-A-US2018-165456

PATIENT
  Age: 49 Year
  Sex: Female

DRUGS (32)
  1. BUMEX [Concomitant]
     Active Substance: BUMETANIDE
     Dosage: 1 MG, UNK
  2. ACETAMINOPHEN. [Concomitant]
     Active Substance: ACETAMINOPHEN
     Dosage: 325 MG, PRN
  3. ONDANSETRON [Concomitant]
     Active Substance: ONDANSETRON
     Dosage: 4 MG, PRN
     Route: 048
  4. ADCIRCA [Concomitant]
     Active Substance: TADALAFIL
     Dosage: 40 MG, QD
     Route: 048
  5. CETIRIZINE [Concomitant]
     Active Substance: CETIRIZINE HYDROCHLORIDE
     Dosage: 5 MG, UNK
  6. PROAIR HFA [Concomitant]
     Active Substance: ALBUTEROL SULFATE
     Dosage: 108 MCG/ACT
     Route: 055
  7. PROVENTIL HFA [Concomitant]
     Active Substance: ALBUTEROL SULFATE
     Dosage: 2.5 MG/3ML
     Route: 055
  8. ADVAIR HFA [Concomitant]
     Active Substance: FLUTICASONE PROPIONATE\SALMETEROL XINAFOATE
     Dosage: 100-50 MCG1 PUFF/BID
  9. PRILOSEC [Concomitant]
     Active Substance: OMEPRAZOLE MAGNESIUM
     Dosage: 20 MG, QD
  10. AMLODIPINE [Concomitant]
     Active Substance: AMLODIPINE BESYLATE
     Dosage: 10 MG, UNK
  11. TYLENOL [Concomitant]
     Active Substance: ACETAMINOPHEN
     Dosage: 325 MG, Q6HRS
  12. TESSALON [Concomitant]
     Active Substance: BENZONATATE
     Dosage: 200 MG, PRN
  13. PLAQUENIL [Concomitant]
     Active Substance: HYDROXYCHLOROQUINE SULFATE
     Dosage: 200 MG, BID
  14. ZOFRAN [Concomitant]
     Active Substance: ONDANSETRON HYDROCHLORIDE
     Dosage: 8 MG, PRN
  15. ASPIRIN. [Concomitant]
     Active Substance: ASPIRIN
     Dosage: 81 MG, UNK
  16. HYDROXYCHLOROQUINE [Concomitant]
     Active Substance: HYDROXYCHLOROQUINE
     Dosage: 200 MG, BID
     Route: 048
  17. LOPERAMIDE [Concomitant]
     Active Substance: LOPERAMIDE
     Dosage: 2 MG, PRN
     Route: 048
  18. NORVASC [Concomitant]
     Active Substance: AMLODIPINE BESYLATE
     Dosage: 5 MG, QD
  19. UPTRAVI [Suspect]
     Active Substance: SELEXIPAG
     Indication: PULMONARY ARTERIAL HYPERTENSION
     Dosage: 800 MCG, BID
     Route: 048
     Dates: start: 20171201
  20. UPTRAVI [Suspect]
     Active Substance: SELEXIPAG
     Dosage: 1600 MCG, BID
     Route: 048
  21. ALENDRONATE [Concomitant]
     Active Substance: ALENDRONATE SODIUM
     Dosage: 70 MG, Q1WEEK
     Route: 048
  22. ZYRTEC [Concomitant]
     Active Substance: CETIRIZINE HYDROCHLORIDE
  23. COZAAR [Concomitant]
     Active Substance: LOSARTAN POTASSIUM
     Dosage: 100 MG
  24. POTASSIUM [Concomitant]
     Active Substance: POTASSIUM
  25. BENZONATATE. [Concomitant]
     Active Substance: BENZONATATE
     Dosage: 200 MG, PRN
  26. MUPIROCIN. [Concomitant]
     Active Substance: MUPIROCIN
     Dosage: 2 %, TID
  27. OMEPRAZOLE. [Concomitant]
     Active Substance: OMEPRAZOLE
     Dosage: 20 MG, QD
     Route: 048
  28. OPSUMIT [Suspect]
     Active Substance: MACITENTAN
     Indication: PULMONARY ARTERIAL HYPERTENSION
     Dosage: 10 MG, QD
     Route: 048
     Dates: start: 20160805
  29. ERGOCALCIFEROL. [Concomitant]
     Active Substance: ERGOCALCIFEROL
     Dosage: 5000 U, Q1WEEK
     Route: 048
  30. LOSARTAN. [Concomitant]
     Active Substance: LOSARTAN
     Dosage: 100 MG, UNK
  31. IMODIUM [Concomitant]
     Active Substance: LOPERAMIDE HYDROCHLORIDE
     Dosage: 2 MG, PRN
  32. DELTASONE [Concomitant]
     Active Substance: PREDNISONE
     Dosage: 1 MG, QD

REACTIONS (25)
  - Bronchitis [Recovered/Resolved]
  - Cough [Recovered/Resolved]
  - Pneumonia [Recovered/Resolved]
  - Haemoglobin decreased [Unknown]
  - Dyspnoea [Recovered/Resolved]
  - Abscess limb [Recovered/Resolved with Sequelae]
  - Headache [Unknown]
  - Respiratory syncytial virus infection [Unknown]
  - Productive cough [Recovered/Resolved]
  - Anaemia [Unknown]
  - Transfusion [Unknown]
  - Peripheral swelling [Recovered/Resolved with Sequelae]
  - Glycosylated haemoglobin increased [Unknown]
  - Gastrointestinal viral infection [Recovered/Resolved]
  - Influenza [Recovered/Resolved]
  - Dehydration [Recovered/Resolved]
  - Pain in extremity [Recovered/Resolved with Sequelae]
  - Blood potassium decreased [Unknown]
  - Nausea [Recovered/Resolved]
  - Vomiting [Recovered/Resolved]
  - Diarrhoea [Recovered/Resolved]
  - Pyrexia [Recovered/Resolved]
  - Wheezing [Recovered/Resolved]
  - Haematocrit decreased [Unknown]
  - Skin ulcer [Unknown]

NARRATIVE: CASE EVENT DATE: 201702
